FAERS Safety Report 5200809-0 (Version None)
Quarter: 2006Q4

REPORT INFORMATION
  Report Type: 
  Country: None (occurrence: None)
  Receive Date: 20061016
  Receipt Date: 20060713
  Transmission Date: 20070319
  Serious: No
  Sender: FDA-Public Use
  Company Number: 2006SP002699

PATIENT
  Age: 59 Year
  Sex: Female

DRUGS (13)
  1. LUNESTA [Suspect]
     Indication: INSOMNIA
     Dosage: 2 MG; ORAL;  3 MG, ORAL
     Route: 048
     Dates: start: 20060101, end: 20060710
  2. LUNESTA [Suspect]
     Indication: INSOMNIA
     Dosage: 2 MG; ORAL;  3 MG, ORAL
     Route: 048
     Dates: start: 20060711
  3. GLYBURIDE [Concomitant]
  4. METOCLOPRAMIDE [Concomitant]
  5. PIOGLITAZONE [Concomitant]
  6. SIMVASTATIN [Concomitant]
  7. DIGITEK [Concomitant]
  8. METOPROLOL SUCCINATE [Concomitant]
  9. WARFARIN SODIUM [Concomitant]
  10. PREVACID [Concomitant]
  11. METFORMIN [Concomitant]
  12. XANAX [Concomitant]
  13. VITAMINS [Concomitant]

REACTIONS (2)
  - DRUG INEFFECTIVE [None]
  - INSOMNIA [None]
